FAERS Safety Report 14996330 (Version 1)
Quarter: 2018Q2

REPORT INFORMATION
  Report Type: Spontaneous
  Country: DE (occurrence: DE)
  Receive Date: 20180611
  Receipt Date: 20180611
  Transmission Date: 20180711
  Serious: Yes (Hospitalization)
  Sender: FDA-Public Use
  Company Number: DE-TEVA-2018-DE-904748

PATIENT
  Age: 65 Year
  Sex: Male

DRUGS (13)
  1. ELIQUIS [Suspect]
     Active Substance: APIXABAN
     Dosage: 5 MG, 1-0-1-0
     Route: 065
  2. LEVOTHYROXIN-NATRIUM [Concomitant]
     Active Substance: LEVOTHYROXINE SODIUM
     Dosage: 25 ?G, 1-0-0-0
  3. AIRFLUSAL FORSPIRO [Concomitant]
     Active Substance: FLUTICASONE PROPIONATE\SALMETEROL XINAFOATE
     Dosage: 50|444 ?G, 2-0-2-0
  4. SPIRONOLACTON [Concomitant]
     Active Substance: SPIRONOLACTONE
     Dosage: 50 MG, 1-0-0-0
  5. RAMIPRIL. [Concomitant]
     Active Substance: RAMIPRIL
     Dosage: 10 MG, 1-0-0-0
  6. SALBUTAMOL [Concomitant]
     Active Substance: ALBUTEROL
     Dosage: 1-1-1-0
  7. VERAPAMIL [Concomitant]
     Active Substance: VERAPAMIL HYDROCHLORIDE
     Dosage: 80 MG, 1-1-1-0
  8. SPIRIVA [Concomitant]
     Active Substance: TIOTROPIUM BROMIDE MONOHYDRATE
     Dosage: 1-0-0-0
  9. PANTOPRAZOL [Concomitant]
     Active Substance: PANTOPRAZOLE SODIUM
     Dosage: 20 MG, 0-0-1-0
  10. DIGITOXIN [Concomitant]
     Active Substance: DIGITOXIN
     Dosage: 0.07 MG, 1-0-0-0
  11. CLOPIDOGREL [Suspect]
     Active Substance: CLOPIDOGREL BISULFATE
     Dosage: 75 MG, 1-0-0-0
     Route: 065
  12. SIMVASTATIN. [Concomitant]
     Active Substance: SIMVASTATIN
     Dosage: 40 MG, 0-0-1-0
  13. FURORESE 500MG [Concomitant]
     Dosage: 500 MG, 0.5-0-0-0

REACTIONS (3)
  - Gastrointestinal haemorrhage [Unknown]
  - Anaemia [Unknown]
  - Internal haemorrhage [Unknown]
